FAERS Safety Report 23348562 (Version 1)
Quarter: 2023Q4

REPORT INFORMATION
  Report Type: Report from Study
  Country: CL (occurrence: CL)
  Receive Date: 20231228
  Receipt Date: 20231228
  Transmission Date: 20240110
  Serious: Yes (Hospitalization, Other)
  Sender: FDA-Public Use
  Company Number: CL-002147023-NVSC2023CL272327

PATIENT
  Age: 34 Year
  Sex: Female

DRUGS (1)
  1. ETANERCEPT [Suspect]
     Active Substance: ETANERCEPT
     Indication: Psoriatic arthropathy
     Dosage: 50 MG, QW
     Route: 058
     Dates: start: 20231013, end: 20231201

REACTIONS (8)
  - Herpes zoster [Unknown]
  - Condition aggravated [Unknown]
  - Rash macular [Unknown]
  - Lymphadenitis [Unknown]
  - Deafness [Unknown]
  - Facial paralysis [Unknown]
  - Skin plaque [Unknown]
  - Wound [Recovering/Resolving]

NARRATIVE: CASE EVENT DATE: 20231204
